FAERS Safety Report 18379300 (Version 1)
Quarter: 2020Q4

REPORT INFORMATION
  Report Type: Spontaneous
  Country: US (occurrence: US)
  Receive Date: 20201013
  Receipt Date: 20201013
  Transmission Date: 20210114
  Serious: No
  Sender: FDA-Public Use
  Company Number: US-ELI_LILLY_AND_COMPANY-US202009013633

PATIENT
  Age: 45 Year
  Sex: Female

DRUGS (1)
  1. RETEVMO [Suspect]
     Active Substance: SELPERCATINIB
     Indication: THYROID CANCER
     Dosage: 160 MG, BID
     Route: 065

REACTIONS (1)
  - Toxicity to various agents [Recovered/Resolved]
